FAERS Safety Report 25471144 (Version 2)
Quarter: 2025Q3

REPORT INFORMATION
  Report Type: Spontaneous
  Country: BR (occurrence: BR)
  Receive Date: 20250624
  Receipt Date: 20250702
  Transmission Date: 20251020
  Serious: Yes (Life-Threatening, Hospitalization, Other)
  Sender: BIOVITRUM
  Company Number: BR-BIOVITRUM-2025-BR-008705

PATIENT
  Age: 15 Year
  Sex: Male
  Weight: 44.5 kg

DRUGS (8)
  1. ORFADIN [Suspect]
     Active Substance: NITISINONE
     Indication: Tyrosinaemia
     Route: 048
     Dates: start: 20100215, end: 202506
  2. DIAZEPAM [Concomitant]
     Active Substance: DIAZEPAM
     Indication: Product used for unknown indication
  3. PROPRANOLOL [Concomitant]
     Active Substance: PROPRANOLOL HYDROCHLORIDE
     Indication: Product used for unknown indication
  4. PREDISIN [Concomitant]
     Indication: Product used for unknown indication
  5. BACLOFEN [Concomitant]
     Active Substance: BACLOFEN
     Indication: Product used for unknown indication
  6. DEPAKENE [Concomitant]
     Active Substance: VALPROIC ACID
     Indication: Product used for unknown indication
  7. PURAN [Concomitant]
     Active Substance: LEVOTHYROXINE SODIUM
     Indication: Product used for unknown indication
  8. CLOBAZAM [Concomitant]
     Active Substance: CLOBAZAM
     Indication: Product used for unknown indication

REACTIONS (7)
  - Pneumonia [Unknown]
  - Cardiac arrest [Unknown]
  - Myocarditis [Unknown]
  - Lung disorder [Unknown]
  - Pleural effusion [Unknown]
  - Pericarditis [Unknown]
  - Pericardial effusion [Unknown]

NARRATIVE: CASE EVENT DATE: 20241001
